FAERS Safety Report 16926514 (Version 2)
Quarter: 2019Q4

REPORT INFORMATION
  Report Type: Spontaneous
  Country: US (occurrence: US)
  Receive Date: 20191016
  Receipt Date: 20191223
  Transmission Date: 20200122
  Serious: Yes (Other)
  Sender: FDA-Public Use
  Company Number: US-SA-2019SA282512

PATIENT
  Age: 42 Year
  Sex: Female
  Weight: 75.75 kg

DRUGS (8)
  1. ONDANSETRON [Concomitant]
     Active Substance: ONDANSETRON
     Dosage: UNK
     Dates: start: 200901
  2. TAXOTERE [Suspect]
     Active Substance: DOCETAXEL
     Indication: BREAST CANCER FEMALE
     Dosage: 63 MG, Q3W
     Route: 042
     Dates: start: 20100810, end: 20100810
  3. TAXOTERE [Suspect]
     Active Substance: DOCETAXEL
     Dosage: 63 MG, Q3W
     Route: 042
     Dates: start: 20101118, end: 20101118
  4. NEOSAR [Concomitant]
     Active Substance: CYCLOPHOSPHAMIDE
     Dosage: UNK
     Dates: start: 20101118, end: 20101118
  5. DIPHENHYDRAMINE. [Concomitant]
     Active Substance: DIPHENHYDRAMINE
     Dosage: UNK
     Dates: start: 200901
  6. NEOSAR [Concomitant]
     Active Substance: CYCLOPHOSPHAMIDE
     Indication: BREAST CANCER FEMALE
     Dosage: UNK
     Dates: start: 20100810, end: 20100810
  7. TAMOXIFEN [Concomitant]
     Active Substance: TAMOXIFEN
     Indication: BREAST CANCER FEMALE
     Dosage: UNK
     Dates: start: 2010, end: 2015
  8. HERCEPTIN [Concomitant]
     Active Substance: TRASTUZUMAB
     Indication: BREAST CANCER FEMALE
     Dosage: UNK

REACTIONS (3)
  - Anxiety [Unknown]
  - Alopecia [Not Recovered/Not Resolved]
  - Emotional distress [Unknown]

NARRATIVE: CASE EVENT DATE: 201105
